FAERS Safety Report 7976370 (Version 2)
Quarter: 2013Q1

REPORT INFORMATION
  Report Type: Report from Study
  Country: US (occurrence: US)
  Receive Date: 20110606
  Receipt Date: 20130213
  Transmission Date: 20140127
  Serious: Yes (Hospitalization)
  Sender: FDA-Public Use
  Company Number: PHHO2011US09369

PATIENT
  Sex: Male
  Weight: 65.7 kg

DRUGS (7)
  1. MYFORTIC [Suspect]
     Indication: IMMUNOSUPPRESSION
     Dosage: UNK
     Route: 048
     Dates: start: 20110204, end: 20110417
  2. MYFORTIC [Suspect]
     Dosage: 360 MG, BID
     Route: 048
     Dates: start: 20110422
  3. TACROLIMUS [Suspect]
     Indication: IMMUNOSUPPRESSION
     Dosage: 2 MG, BID
     Route: 048
     Dates: start: 20110202
  4. VALCYTE [Suspect]
     Indication: INFECTION PROPHYLAXIS
     Dosage: UNK
     Dates: start: 20110206, end: 20110417
  5. VALCYTE [Suspect]
     Dosage: UNK
     Dates: start: 20110428
  6. MYCELEX [Concomitant]
     Dosage: UNK
     Dates: start: 20110207
  7. LOPRESSOR [Concomitant]
     Dosage: UNK
     Dates: start: 20110207

REACTIONS (1)
  - Febrile neutropenia [Recovered/Resolved]
